FAERS Safety Report 5982520-1 (Version None)
Quarter: 2008Q4

REPORT INFORMATION
  Report Type: 
  Country: None (occurrence: None)
  Receive Date: 20081208
  Receipt Date: 20080229
  Transmission Date: 20090506
  Serious: No
  Sender: FDA-Public Use
  Company Number: US-AMGEN-KDL267838

PATIENT
  Sex: Female

DRUGS (5)
  1. ENBREL [Suspect]
     Indication: RHEUMATOID ARTHRITIS
     Route: 058
     Dates: start: 20010401
  2. ENBREL [Suspect]
     Indication: ANKYLOSING SPONDYLITIS
  3. ENBREL [Suspect]
     Indication: PSORIATIC ARTHROPATHY
  4. ENBREL [Suspect]
     Indication: PSORIASIS
  5. ENBREL [Suspect]
     Indication: DRUG USE FOR UNKNOWN INDICATION

REACTIONS (7)
  - ANKYLOSING SPONDYLITIS [None]
  - ARTHRALGIA [None]
  - GASTROENTERITIS VIRAL [None]
  - INFLUENZA [None]
  - INJECTION SITE PAIN [None]
  - PSORIASIS [None]
  - PSORIATIC ARTHROPATHY [None]
